FAERS Safety Report 21958147 (Version 1)
Quarter: 2023Q1

REPORT INFORMATION
  Report Type: Report from Study
  Country: IT (occurrence: IT)
  Receive Date: 20230206
  Receipt Date: 20230206
  Transmission Date: 20230418
  Serious: Yes (Hospitalization, Other)
  Sender: FDA-Public Use
  Company Number: IT-PFIZER INC-PV202300018725

PATIENT
  Age: 52 Year
  Sex: Male

DRUGS (11)
  1. GEMTUZUMAB OZOGAMICIN [Suspect]
     Active Substance: GEMTUZUMAB OZOGAMICIN
     Indication: Acute myeloid leukaemia
     Dosage: 5 MG, DAILY
     Route: 042
     Dates: start: 20221007, end: 20221013
  2. GEMTUZUMAB OZOGAMICIN [Suspect]
     Active Substance: GEMTUZUMAB OZOGAMICIN
     Dosage: 5 MG, DAILY
     Route: 042
     Dates: start: 20221118, end: 20221118
  3. DAUNORUBICIN HYDROCHLORIDE [Suspect]
     Active Substance: DAUNORUBICIN HYDROCHLORIDE
     Indication: Acute myeloid leukaemia
     Dosage: 118.2 MG
     Dates: start: 20221007, end: 20221009
  4. DAUNORUBICIN HYDROCHLORIDE [Suspect]
     Active Substance: DAUNORUBICIN HYDROCHLORIDE
     Dosage: 93 MG, DAILY
     Dates: start: 20221121, end: 20221123
  5. CYTARABINE [Suspect]
     Active Substance: CYTARABINE
     Indication: Acute myeloid leukaemia
     Dosage: 394 MG, DAILY
     Route: 042
     Dates: start: 20221007, end: 20221013
  6. CYTARABINE [Suspect]
     Active Substance: CYTARABINE
     Dosage: 1860 MG, DAILY
     Route: 042
     Dates: start: 20221118, end: 20221123
  7. VENLAFAXINE [Concomitant]
     Active Substance: VENLAFAXINE HYDROCHLORIDE
  8. LAMIVUDINE [Concomitant]
     Active Substance: LAMIVUDINE
  9. URSODIOL [Concomitant]
     Active Substance: URSODIOL
  10. LORAZEPAM [Concomitant]
     Active Substance: LORAZEPAM
  11. VALPROIC ACID [Concomitant]
     Active Substance: VALPROIC ACID

REACTIONS (1)
  - Gastrointestinal haemorrhage [Recovered/Resolved]

NARRATIVE: CASE EVENT DATE: 20230111
